FAERS Safety Report 25530207 (Version 1)
Quarter: 2025Q3

REPORT INFORMATION
  Report Type: Spontaneous
  Country: US (occurrence: None)
  Receive Date: 20250708
  Receipt Date: 20250708
  Transmission Date: 20251021
  Serious: Yes (Life-Threatening, Hospitalization)
  Sender: FDA-CTU
  Company Number: None

PATIENT
  Age: 69 Year
  Sex: Male
  Weight: 64 kg

DRUGS (2)
  1. PENTAMIDINE [Suspect]
     Active Substance: PENTAMIDINE
     Indication: Pneumocystis jirovecii pneumonia
     Route: 055
     Dates: start: 20250428, end: 20250428
  2. PENTAMIDINE [Suspect]
     Active Substance: PENTAMIDINE
     Indication: Antifungal prophylaxis

REACTIONS (6)
  - Dyspnoea [None]
  - Dyspnoea [None]
  - Tachycardia [None]
  - Hypertension [None]
  - Cardio-respiratory arrest [None]
  - Procedural anxiety [None]

NARRATIVE: CASE EVENT DATE: 20250428
